FAERS Safety Report 8348371-8 (Version None)
Quarter: 2012Q2

REPORT INFORMATION
  Report Type: 
  Country: None (occurrence: None)
  Receive Date: 20120509
  Receipt Date: 20120502
  Transmission Date: 20120825
  Serious: Yes (Hospitalization)
  Sender: FDA-Public Use
  Company Number: CA-ROCHE-GNE267947

PATIENT
  Sex: Male
  Weight: 66.071 kg

DRUGS (14)
  1. OMALIZUMAB [Suspect]
     Dosage: 375 MG, Q2W
     Route: 058
     Dates: start: 20100308
  2. OMALIZUMAB [Suspect]
     Dosage: 375 MG, Q2W
     Route: 058
     Dates: start: 20100405
  3. OMALIZUMAB [Suspect]
     Dosage: 375 MG, Q2W
     Route: 058
     Dates: start: 20100208
  4. NOVOTRIMEL [Concomitant]
     Indication: PRODUCT USED FOR UNKNOWN INDICATION
     Dosage: UNK
     Route: 065
     Dates: end: 20080101
  5. ADVAIR DISKUS 100/50 [Concomitant]
     Indication: PRODUCT USED FOR UNKNOWN INDICATION
     Dosage: UNK
     Route: 065
     Dates: end: 20080101
  6. OMALIZUMAB [Suspect]
     Indication: ASTHMA
     Dosage: 375 MG, Q2W
     Route: 058
     Dates: start: 20080721
  7. OMALIZUMAB [Suspect]
     Dosage: 375 MG, Q2W
     Route: 058
     Dates: start: 20091130
  8. OMALIZUMAB [Suspect]
     Dosage: 375 MG, Q2W
     Route: 065
     Dates: start: 20091019
  9. SEREVENT [Concomitant]
     Indication: PRODUCT USED FOR UNKNOWN INDICATION
  10. PULMOZYME [Concomitant]
     Indication: PRODUCT USED FOR UNKNOWN INDICATION
  11. PREDNISONE TAB [Concomitant]
     Indication: PRODUCT USED FOR UNKNOWN INDICATION
     Dosage: UNK
     Route: 065
  12. OMALIZUMAB [Suspect]
     Dosage: UNK
     Route: 065
  13. TOBRAMYCIN [Concomitant]
     Indication: PRODUCT USED FOR UNKNOWN INDICATION
     Dosage: UNK
     Route: 065
     Dates: end: 20080101
  14. ALVESCO [Concomitant]
     Indication: PRODUCT USED FOR UNKNOWN INDICATION

REACTIONS (16)
  - ASPERGILLOSIS [None]
  - RESPIRATORY TRACT INFECTION [None]
  - THROAT IRRITATION [None]
  - RESPIRATORY DISORDER [None]
  - DYSPHONIA [None]
  - NASOPHARYNGITIS [None]
  - INCREASED BRONCHIAL SECRETION [None]
  - HEART RATE INCREASED [None]
  - NASAL CONGESTION [None]
  - BLOOD PRESSURE ABNORMAL [None]
  - LUNG INFECTION [None]
  - OROPHARYNGEAL PAIN [None]
  - PULMONARY FUNCTION TEST ABNORMAL [None]
  - FEELING COLD [None]
  - COUGH [None]
  - PHARYNGITIS [None]
